FAERS Safety Report 4291017-9 (Version None)
Quarter: 2004Q1

REPORT INFORMATION
  Report Type: 
  Country: None (occurrence: None)
  Receive Date: 20040209
  Receipt Date: 20040128
  Transmission Date: 20041129
  Serious: Yes (Hospitalization, Disabling)
  Sender: FDA-Public Use
  Company Number: NL-JNJFOC-20040100177

PATIENT
  Age: 40 Year
  Sex: Female

DRUGS (4)
  1. REMICADE [Suspect]
     Indication: MYOSITIS
     Dosage: INTRAVENOUS
     Route: 042
  2. METHOTREXATE [Concomitant]
  3. FOLIC ACID [Concomitant]
  4. IBUPROFEN [Concomitant]

REACTIONS (2)
  - DISEASE PROGRESSION [None]
  - MUSCULAR WEAKNESS [None]
